FAERS Safety Report 18397646 (Version 3)
Quarter: 2021Q4

REPORT INFORMATION
  Report Type: Spontaneous
  Country: DE (occurrence: DE)
  Receive Date: 20201019
  Receipt Date: 20211022
  Transmission Date: 20220303
  Serious: Yes (Hospitalization, Other)
  Sender: FDA-Public Use
  Company Number: DE-SHIRE-DE202033489

PATIENT
  Age: 11 Year
  Sex: Female
  Weight: 40 kg

DRUGS (5)
  1. MESALAMINE [Suspect]
     Active Substance: MESALAMINE
     Indication: Colitis ulcerative
     Dosage: 1 GRAM, QD
     Route: 054
     Dates: start: 20170620
  2. MESALAMINE [Suspect]
     Active Substance: MESALAMINE
     Dosage: 1.5 GRAM, QD
     Route: 048
     Dates: start: 20170620, end: 20170704
  3. MESALAMINE [Suspect]
     Active Substance: MESALAMINE
     Dosage: 3 GRAM, QD
     Route: 048
     Dates: start: 20170705, end: 20170713
  4. MESALAMINE [Suspect]
     Active Substance: MESALAMINE
     Dosage: 2.5 GRAM, QD
     Route: 048
     Dates: start: 20200714, end: 20200717
  5. MESALAMINE [Suspect]
     Active Substance: MESALAMINE
     Dosage: 2.5 GRAM, QD
     Route: 048
     Dates: start: 20170714, end: 20170717

REACTIONS (8)
  - General physical health deterioration [Recovered/Resolved]
  - Lipase increased [Recovered/Resolved]
  - Vomiting [Recovered/Resolved]
  - Fatigue [Recovered/Resolved]
  - Pancreatitis [Recovered/Resolved]
  - Headache [Recovered/Resolved]
  - Pyrexia [Recovered/Resolved]
  - Abdominal pain [Recovered/Resolved]

NARRATIVE: CASE EVENT DATE: 20170701
